FAERS Safety Report 8381870-1 (Version None)
Quarter: 2012Q2

REPORT INFORMATION
  Report Type: 
  Country: None (occurrence: None)
  Receive Date: 20120522
  Receipt Date: 20120522
  Transmission Date: 20120825
  Serious: Yes (Disabling)
  Sender: FDA-Public Use
  Company Number: None

PATIENT
  Age: 21 Year
  Sex: Male
  Weight: 74.8435 kg

DRUGS (1)
  1. PROPECIA [Suspect]
     Indication: ANDROGENETIC ALOPECIA
     Dosage: 1 MG FINASTERIDE DAILY PO
     Route: 048
     Dates: start: 20100719, end: 20100915

REACTIONS (23)
  - ERECTILE DYSFUNCTION [None]
  - JOINT STIFFNESS [None]
  - BLOOD TESTOSTERONE DECREASED [None]
  - LACERATION [None]
  - DECREASED INTEREST [None]
  - TESTICULAR ATROPHY [None]
  - IMPAIRED HEALING [None]
  - FEELING ABNORMAL [None]
  - APATHY [None]
  - PAIN [None]
  - MUSCLE ATROPHY [None]
  - GINGIVITIS [None]
  - IMPAIRED WORK ABILITY [None]
  - EJACULATION FAILURE [None]
  - SOCIAL AVOIDANT BEHAVIOUR [None]
  - BONE PAIN [None]
  - AMNESIA [None]
  - PENILE SIZE REDUCED [None]
  - ARTHRALGIA [None]
  - DRY SKIN [None]
  - INDIFFERENCE [None]
  - LOSS OF LIBIDO [None]
  - FATIGUE [None]
